FAERS Safety Report 6125260-0 (Version None)
Quarter: 2009Q1

REPORT INFORMATION
  Report Type: 
  Country: None (occurrence: None)
  Receive Date: 20090320
  Receipt Date: 20090310
  Transmission Date: 20090719
  Serious: Yes (Other)
  Sender: FDA-Public Use
  Company Number: PHHY2009US08942

PATIENT
  Sex: Female

DRUGS (1)
  1. RECLAST [Suspect]
     Dosage: UNK
     Dates: start: 20080624

REACTIONS (8)
  - ARTHRALGIA [None]
  - BEDRIDDEN [None]
  - BURNING SENSATION [None]
  - NAUSEA [None]
  - PAIN [None]
  - PYREXIA [None]
  - TREMOR [None]
  - VOMITING [None]
